FAERS Safety Report 26011481 (Version 1)
Quarter: 2025Q4

REPORT INFORMATION
  Report Type: Spontaneous
  Country: US (occurrence: None)
  Receive Date: 20251106
  Receipt Date: 20251106
  Transmission Date: 20260118
  Serious: Yes (Hospitalization)
  Sender: FDA-CTU
  Company Number: None

PATIENT
  Sex: Female
  Weight: 60.75 kg

DRUGS (3)
  1. OPSUMIT [Suspect]
     Active Substance: MACITENTAN
     Indication: Pulmonary arterial hypertension
     Dosage: FREQUENCY : DAILY;?
     Route: 048
     Dates: start: 20221004
  2. DEVICE [Suspect]
     Active Substance: DEVICE
  3. WINREVAIR [Suspect]
     Active Substance: SOTATERCEPT-CSRK

REACTIONS (3)
  - Tobacco user [None]
  - Medical device site burn [None]
  - Thermal burn [None]
